FAERS Safety Report 10186853 (Version 1)
Quarter: 2014Q2

REPORT INFORMATION
  Report Type: Spontaneous
  Country: ES (occurrence: ES)
  Receive Date: 20140522
  Receipt Date: 20140522
  Transmission Date: 20141212
  Serious: Yes (Other)
  Sender: FDA-Public Use
  Company Number: ES-009507513-1405ESP009447

PATIENT
  Age: 48 Year
  Sex: Female

DRUGS (1)
  1. SINGULAIR 10 MG COMPRIMIDOS RECUBIERTOS CON PEL?CULA [Suspect]
     Indication: ASTHMA
     Dosage: 10 MG CADA 24 HORAS
     Route: 048
     Dates: start: 20100513, end: 20140513

REACTIONS (1)
  - Cholestasis [Recovering/Resolving]
